FAERS Safety Report 6430047-5 (Version None)
Quarter: 2009Q4

REPORT INFORMATION
  Report Type: 
  Country: None (occurrence: None)
  Receive Date: 20091103
  Receipt Date: 20091019
  Transmission Date: 20100525
  Serious: No
  Sender: FDA-Public Use
  Company Number: 02100-JPN-05-0118

PATIENT
  Age: 70 Year
  Sex: Male
  Weight: 53 kg

DRUGS (8)
  1. PLETAL [Suspect]
     Indication: CEREBRAL INFARCTION
     Dosage: 81 MG, QD , ORAL
     Route: 048
     Dates: start: 20041215, end: 20050311
  2. PURSENNID (SENNOSIDE) TABLET [Concomitant]
  3. IDOMETHINE (INDOMETACIN) UNKNOWN [Concomitant]
  4. RANTUDIL (ACEMETACIN) TABLET [Concomitant]
  5. VALTREX [Concomitant]
  6. VESICUM (IBUPROFEN PICONOL) OINTMENT, CREAM [Concomitant]
  7. ZOLPIDEM TARTRATE [Concomitant]
  8. STOGAR (LAFUTIDINE) TABLET [Concomitant]

REACTIONS (4)
  - ACTIVITIES OF DAILY LIVING IMPAIRED [None]
  - FALL [None]
  - HERPES ZOSTER [None]
  - MUSCLE HAEMORRHAGE [None]
